FAERS Safety Report 6348711-5 (Version None)
Quarter: 2009Q3

REPORT INFORMATION
  Report Type: 
  Country: None (occurrence: None)
  Receive Date: 20090911
  Receipt Date: 20090903
  Transmission Date: 20100115
  Serious: Yes (Hospitalization, Other)
  Sender: FDA-Public Use
  Company Number: PHHY2008JP11738

PATIENT
  Sex: Female
  Weight: 45 kg

DRUGS (12)
  1. COMTAN [Suspect]
     Indication: PARKINSON'S DISEASE
     Dosage: 100 MG DAILY
     Route: 048
  2. COMTAN [Suspect]
     Indication: DRUG EFFECT DECREASED
     Dosage: 100 MG, BID
     Route: 048
     Dates: start: 20080602, end: 20080606
  3. LEVODOPA [Concomitant]
     Route: 048
  4. DOPAMINE HCL [Concomitant]
  5. MENESIT [Concomitant]
     Indication: PARKINSON'S DISEASE
     Dosage: 300 MG, UNK
     Route: 048
     Dates: start: 20040901
  6. MENESIT [Concomitant]
     Dosage: 200MG
     Route: 048
  7. PRAMIPEXOLE DIHYDROCHLORIDE [Concomitant]
     Indication: PARKINSON'S DISEASE
     Dosage: 1.0 MG, UNK
     Route: 048
  8. DEPAS [Concomitant]
     Dosage: 0.5 MG, UNK
     Route: 048
  9. PAXIL [Concomitant]
     Dosage: 40 MG, UNK
     Route: 048
  10. FAMOSTAGINE [Concomitant]
     Indication: ABDOMINAL DISCOMFORT
     Dosage: 20 MG, UNK
     Route: 048
  11. ALOSENN [Concomitant]
     Indication: CONSTIPATION
     Dosage: 1.0 G, UNK
     Route: 048
  12. MAGNESIUM OXIDE [Concomitant]
     Indication: CONSTIPATION
     Dosage: 1.5MG
     Route: 048

REACTIONS (3)
  - HALLUCINATION [None]
  - HUMERUS FRACTURE [None]
  - PAIN IN EXTREMITY [None]
